FAERS Safety Report 10139291 (Version 1)
Quarter: 2014Q2

REPORT INFORMATION
  Report Type: Spontaneous
  Country: FR (occurrence: FR)
  Receive Date: 20140429
  Receipt Date: 20140429
  Transmission Date: 20141212
  Serious: Yes (Hospitalization)
  Sender: FDA-Public Use
  Company Number: PHHY2014FR051074

PATIENT
  Age: 47 Year
  Sex: Male

DRUGS (8)
  1. VOLTARENE [Suspect]
     Indication: BACK PAIN
     Dosage: UNK UKN, UNK
     Route: 048
     Dates: start: 20140124
  2. VOLTARENE EMULGEL [Suspect]
     Indication: BACK PAIN
     Dosage: 1 %, UNK
     Route: 003
     Dates: start: 20140124
  3. PACLITAXEL KABI [Suspect]
     Indication: ANGIOSARCOMA
     Dosage: UNK UKN, FIRST COURSE
     Route: 042
     Dates: start: 20140115, end: 20140129
  4. PACLITAXEL KABI [Suspect]
     Dosage: UNK UKN, UNK
     Route: 042
     Dates: start: 20140312
  5. IBUPROFENE [Concomitant]
     Indication: BACK PAIN
     Dosage: UNK UKN, UNK
  6. SOLUPRED [Concomitant]
     Indication: BACK PAIN
     Dosage: 60 MG, QD
     Dates: start: 20140129
  7. INEXIUM//ESOMEPRAZOLE MAGNESIUM [Concomitant]
     Indication: BACK PAIN
     Dosage: 20 MG, QD
     Dates: start: 20140129
  8. ACUPAN [Concomitant]
     Indication: BACK PAIN
     Dosage: 4 DF, QD
     Dates: start: 20140129

REACTIONS (2)
  - Staphylococcal infection [Not Recovered/Not Resolved]
  - Endocarditis [Not Recovered/Not Resolved]
